FAERS Safety Report 4432907-3 (Version None)
Quarter: 2004Q3

REPORT INFORMATION
  Report Type: 
  Country: None (occurrence: None)
  Receive Date: 20040825
  Receipt Date: 20040609
  Transmission Date: 20050211
  Serious: Yes (Other)
  Sender: FDA-Public Use
  Company Number: GB-MERCK-0406GBR00099

PATIENT
  Age: 5 Year
  Sex: Male
  Weight: 26 kg

DRUGS (4)
  1. FLUTICASONE PROPIONATE AND SALMETEROL XINAFOATE [Concomitant]
     Indication: ASTHMA
     Route: 055
  2. SINGULAIR [Suspect]
     Indication: ASTHMA
     Route: 048
     Dates: end: 20040601
  3. SINGULAIR [Suspect]
     Route: 048
     Dates: start: 20021101
  4. TERBUTALINE SULFATE [Concomitant]
     Indication: ASTHMA
     Route: 055
     Dates: end: 20040101

REACTIONS (2)
  - EPILEPSY [None]
  - PRESCRIBED OVERDOSE [None]
